FAERS Safety Report 21434043 (Version 1)
Quarter: 2022Q4

REPORT INFORMATION
  Report Type: Spontaneous
  Country: US (occurrence: US)
  Receive Date: 20221010
  Receipt Date: 20221010
  Transmission Date: 20230113
  Serious: Yes (Hospitalization)
  Sender: FDA-Public Use
  Company Number: ENDG22-05189

PATIENT
  Age: 0 Year
  Sex: Male

DRUGS (2)
  1. BOSENTAN [Suspect]
     Active Substance: BOSENTAN
     Indication: Pulmonary arterial hypertension
     Dosage: UNK UNKNOWN, UNKNOWN
     Route: 065
     Dates: start: 202206
  2. BOSENTAN [Suspect]
     Active Substance: BOSENTAN
     Indication: Arteriovenous malformation

REACTIONS (2)
  - Embolism [Unknown]
  - Off label use [Unknown]

NARRATIVE: CASE EVENT DATE: 20220601
